FAERS Safety Report 13497226 (Version 1)
Quarter: 2017Q2

REPORT INFORMATION
  Report Type: Spontaneous
  Country: DE (occurrence: DE)
  Receive Date: 20170428
  Receipt Date: 20170428
  Transmission Date: 20170830
  Serious: Yes (Death, Hospitalization)
  Sender: FDA-Public Use
  Company Number: DE-JNJFOC-20170428452

PATIENT
  Age: 79 Year
  Sex: Male

DRUGS (5)
  1. SIMVASTATIN. [Concomitant]
     Active Substance: SIMVASTATIN
     Route: 048
  2. PANTOZOL [Concomitant]
     Active Substance: PANTOPRAZOLE SODIUM
     Route: 048
  3. METOPROLOL. [Concomitant]
     Active Substance: METOPROLOL
     Route: 048
  4. XARELTO [Suspect]
     Active Substance: RIVAROXABAN
     Indication: ATRIAL FIBRILLATION
     Route: 048
     Dates: end: 201704
  5. DIGOXIN. [Concomitant]
     Active Substance: DIGOXIN
     Route: 048

REACTIONS (1)
  - Cerebellar infarction [Fatal]

NARRATIVE: CASE EVENT DATE: 20170404
